FAERS Safety Report 22160081 (Version 2)
Quarter: 2023Q2

REPORT INFORMATION
  Report Type: Spontaneous
  Country: CZ (occurrence: CZ)
  Receive Date: 20230331
  Receipt Date: 20230413
  Transmission Date: 20230722
  Serious: Yes (Hospitalization, Other)
  Sender: FDA-Public Use
  Company Number: CZ-EMA-DD-20230306-6644851-083551

PATIENT
  Age: 65 Year
  Sex: Female

DRUGS (13)
  1. ATROPINE SULFATE [Suspect]
     Active Substance: ATROPINE SULFATE
     Indication: Premedication
     Route: 030
  2. MIDAZOLAM HYDROCHLORIDE [Suspect]
     Active Substance: MIDAZOLAM HYDROCHLORIDE
     Indication: Premedication
     Dosage: IN THE MORNING OF THE SURGERY
     Route: 030
  3. SUFENTANIL [Suspect]
     Active Substance: SUFENTANIL
     Indication: Induction and maintenance of anaesthesia
     Dosage: CONTINUOUS 20 MCG/HOUR I.V. ADMINISTRATION STOPPED 30 MIN BEFORE THE END OF THE OPERATION.
     Route: 042
  4. ROCURONIUM BROMIDE [Suspect]
     Active Substance: ROCURONIUM BROMIDE
     Indication: Induction and maintenance of anaesthesia
  5. PROPOFOL [Suspect]
     Active Substance: PROPOFOL
     Indication: Induction of anaesthesia
  6. ISOFLURANE [Suspect]
     Active Substance: ISOFLURANE
     Indication: Maintenance of anaesthesia
     Dosage: IN THE RANGE OF 0.8-1.2 VOL % WITHOUT THE USE OF NITROUS OXIDE
  7. ALPRAZOLAM [Suspect]
     Active Substance: ALPRAZOLAM
     Indication: Sleep disorder
  8. NEBIVOLOL [Concomitant]
     Active Substance: NEBIVOLOL
  9. OMEPRAZOLE [Concomitant]
     Active Substance: OMEPRAZOLE
  10. ESCITALOPRAM [Concomitant]
     Active Substance: ESCITALOPRAM OXALATE
  11. METAMIZOLE [Concomitant]
     Active Substance: METAMIZOLE
     Indication: Pain
  12. MESALAMINE [Concomitant]
     Active Substance: MESALAMINE
  13. ROCURONIUM BROMIDE [Suspect]
     Active Substance: ROCURONIUM BROMIDE
     Indication: Induction and maintenance of anaesthesia
     Dosage: A TOTAL OF 55 MG ADMINISTERED, THE LAST DOSE OF 10 MG

REACTIONS (3)
  - Anticholinergic syndrome [Recovered/Resolved]
  - Somnolence [Recovered/Resolved]
  - Sopor [Recovered/Resolved]
